FAERS Safety Report 24275500 (Version 1)
Quarter: 2024Q3

REPORT INFORMATION
  Report Type: Spontaneous
  Country: US (occurrence: US)
  Receive Date: 20240903
  Receipt Date: 20240903
  Transmission Date: 20241017
  Serious: Yes (Hospitalization, Other)
  Sender: SANDOZ
  Company Number: US-SANDOZ-SDZ2024US076645

PATIENT
  Age: 30 Year
  Sex: Female

DRUGS (6)
  1. AZITHROMYCIN [Suspect]
     Active Substance: AZITHROMYCIN
     Indication: Cystic fibrosis
     Dosage: UNK
     Route: 065
     Dates: start: 202402
  2. AZITHROMYCIN [Suspect]
     Active Substance: AZITHROMYCIN
     Indication: Mycobacterium abscessus infection
  3. AMIKACIN [Suspect]
     Active Substance: AMIKACIN
     Indication: Cystic fibrosis
     Route: 042
  4. AMIKACIN [Suspect]
     Active Substance: AMIKACIN
     Indication: Mycobacterium abscessus infection
  5. TIGECYCLINE [Suspect]
     Active Substance: TIGECYCLINE
     Indication: Cystic fibrosis
     Dosage: UNK
     Route: 065
     Dates: start: 202402
  6. TIGECYCLINE [Suspect]
     Active Substance: TIGECYCLINE
     Indication: Mycobacterium abscessus infection

REACTIONS (5)
  - Pulmonary function test decreased [Unknown]
  - Pancytopenia [Unknown]
  - Drug ineffective [Unknown]
  - Pathogen resistance [Unknown]
  - Drug intolerance [Unknown]
